FAERS Safety Report 5525850-X (Version None)
Quarter: 2007Q4

REPORT INFORMATION
  Report Type: 
  Country: None (occurrence: None)
  Receive Date: 20071126
  Receipt Date: 20071112
  Transmission Date: 20080405
  Serious: Yes (Hospitalization, Other)
  Sender: FDA-Public Use
  Company Number: IT-RANBAXY-2007RR-06602

PATIENT

DRUGS (5)
  1. ATENOLOL [Suspect]
     Dosage: 50 MG, QD
  2. AMLODIPINE MALEATE [Suspect]
     Dosage: 10 MG, QD
  3. DOXAZOSIN MESYLATE [Suspect]
     Dosage: 4 MG, BID
  4. FRUSEMIDE [Suspect]
     Dosage: 50 MG, QD
  5. ASPIRIN [Concomitant]

REACTIONS (1)
  - HYPERTENSION [None]
